FAERS Safety Report 14218078 (Version 1)
Quarter: 2017Q4

REPORT INFORMATION
  Report Type: Spontaneous
  Country: ZA (occurrence: ZA)
  Receive Date: 20171123
  Receipt Date: 20171123
  Transmission Date: 20180321
  Serious: Yes (Death, Other)
  Sender: FDA-Public Use
  Company Number: ZA-LUPIN PHARMACEUTICALS INC.-2017-06732

PATIENT
  Sex: Male

DRUGS (4)
  1. DORMONOCT [Suspect]
     Active Substance: LOPRAZOLAM
     Indication: DEPRESSION
     Dosage: 2 MG, QD
     Route: 048
     Dates: end: 20171016
  2. ZARTAN [Suspect]
     Active Substance: LOSARTAN POTASSIUM
     Indication: HYPERTENSION
     Dosage: 100 MG, QD
     Route: 048
     Dates: end: 20171016
  3. VENTEZE /00139501/ [Suspect]
     Active Substance: ALBUTEROL
     Indication: ASTHMA
     Dosage: 100 MCG, QD
     Route: 048
     Dates: end: 20171016
  4. FOXAIR [Suspect]
     Active Substance: FLUTICASONE PROPIONATE\SALMETEROL XINAFOATE
     Indication: ASTHMA
     Dosage: (50/500 MG) QD
     Route: 048
     Dates: end: 20171016

REACTIONS (1)
  - Cardiac failure [Fatal]
